FAERS Safety Report 7154608-3 (Version None)
Quarter: 2010Q4

REPORT INFORMATION
  Report Type: 
  Country: None (occurrence: None)
  Receive Date: 20101214
  Receipt Date: 20091103
  Transmission Date: 20110411
  Serious: Yes (Other)
  Sender: FDA-Public Use
  Company Number: US-AMGEN-QUU365331

PATIENT

DRUGS (5)
  1. ENBREL [Suspect]
     Indication: PSORIATIC ARTHROPATHY
     Dosage: 25 MG, QWK
     Route: 058
     Dates: start: 20030127, end: 20090201
  2. SIMVASTATIN [Concomitant]
     Dosage: 10 MG, UNK
  3. ESCITALOPRAM [Concomitant]
     Dosage: 5 MG, UNK
  4. FISH OIL [Concomitant]
  5. ASPIRIN [Concomitant]
     Dosage: 81 MG, UNK

REACTIONS (1)
  - B-CELL LYMPHOMA [None]
